FAERS Safety Report 19278902 (Version 1)
Quarter: 2021Q2

REPORT INFORMATION
  Report Type: Report from Study
  Country: BR (occurrence: BR)
  Receive Date: 20210520
  Receipt Date: 20210520
  Transmission Date: 20210717
  Serious: Yes (Other)
  Sender: FDA-Public Use
  Company Number: BR-EMD SERONO-9239688

PATIENT
  Age: 61 Year
  Sex: Female

DRUGS (3)
  1. ATACAND COMB [Concomitant]
     Active Substance: CANDESARTAN CILEXETIL\FELODIPINE
     Indication: HYPERTENSION
     Dosage: 16/5 (UNSPECIFIED UNITS)
  2. REBIF [Suspect]
     Active Substance: INTERFERON BETA-1A
     Indication: MULTIPLE SCLEROSIS
     Dosage: 0.5 ML FULL SYRINGE
     Route: 058
     Dates: start: 20141010
  3. BIO?MANGUINHOS BETAINTERFERONA 1A 22 MCG [Suspect]
     Active Substance: INTERFERON BETA-1A
     Indication: MULTIPLE SCLEROSIS
     Route: 058
     Dates: start: 20200601

REACTIONS (3)
  - Fall [Recovered/Resolved]
  - Necrosis [Recovered/Resolved]
  - Joint injury [Recovered/Resolved]

NARRATIVE: CASE EVENT DATE: 2020
